FAERS Safety Report 6793795-3 (Version None)
Quarter: 2010Q2

REPORT INFORMATION
  Report Type: 
  Country: None (occurrence: None)
  Receive Date: 20100624
  Receipt Date: 20090313
  Transmission Date: 20101027
  Serious: No
  Sender: FDA-Public Use
  Company Number: US-PFIZER INC-2009161296

PATIENT
  Sex: Female

DRUGS (1)
  1. SOLU-MEDROL [Suspect]
     Indication: OROPHARYNGEAL PAIN
     Dosage: 125 MG, 1X/DAY
     Route: 030
     Dates: start: 20090126, end: 20090126

REACTIONS (2)
  - INJECTION SITE PAIN [None]
  - PAIN IN EXTREMITY [None]
